FAERS Safety Report 15059968 (Version 1)
Quarter: 2018Q2

REPORT INFORMATION
  Report Type: Spontaneous
  Country: IN (occurrence: US)
  Receive Date: 20180625
  Receipt Date: 20180625
  Transmission Date: 20180711
  Serious: Yes (Other)
  Sender: FDA-Public Use
  Company Number: IN-AMNEAL PHARMACEUTICALS-2018AMN00354

PATIENT
  Age: 61 Year
  Sex: Male

DRUGS (1)
  1. DICLOFENAC SODIUM. [Suspect]
     Active Substance: DICLOFENAC SODIUM
     Indication: DIABETIC RETINAL OEDEMA
     Dosage: 450 ?G, UNK
     Route: 031

REACTIONS (3)
  - Retinal injury [Recovered/Resolved]
  - Retinal toxicity [Recovered/Resolved]
  - Retinal detachment [Recovered/Resolved]
